FAERS Safety Report 4544454-9 (Version None)
Quarter: 2005Q1

REPORT INFORMATION
  Report Type: 
  Country: None (occurrence: None)
  Receive Date: 20050103
  Receipt Date: 20050103
  Transmission Date: 20050727
  Serious: Yes (Death)
  Sender: FDA-Public Use
  Company Number: None

PATIENT
  Age: 51 Year
  Sex: Female
  Weight: 111.5849 kg

DRUGS (2)
  1. ULTRAVIST [Suspect]
     Indication: COMPUTERISED TOMOGRAM
     Dosage: 150CC, ONE TIME, IV
     Route: 042
     Dates: start: 20041130
  2. ULTRAVIST [Suspect]
     Indication: SCAN WITH CONTRAST
     Dosage: 150CC, ONE TIME, IV
     Route: 042
     Dates: start: 20041130

REACTIONS (4)
  - CARDIO-RESPIRATORY ARREST [None]
  - COMA [None]
  - CONTRAST MEDIA REACTION [None]
  - MICTURITION URGENCY [None]
